FAERS Safety Report 25455577 (Version 1)
Quarter: 2025Q2

REPORT INFORMATION
  Report Type: Spontaneous
  Country: PL (occurrence: PL)
  Receive Date: 20250619
  Receipt Date: 20250619
  Transmission Date: 20250717
  Serious: Yes (Hospitalization, Other)
  Sender: UCB
  Company Number: PL-UCBSA-2025035803

PATIENT
  Sex: Female

DRUGS (2)
  1. LEVETIRACETAM [Suspect]
     Active Substance: LEVETIRACETAM
     Indication: Status epilepticus
     Dates: start: 202101
  2. LEVETIRACETAM [Suspect]
     Active Substance: LEVETIRACETAM
     Indication: Off label use

REACTIONS (6)
  - Status epilepticus [Unknown]
  - Speech disorder [Unknown]
  - Ataxia [Unknown]
  - Muscle tightness [Unknown]
  - Off label use [Unknown]
  - Drug ineffective [Unknown]
